FAERS Safety Report 7249749-6 (Version None)
Quarter: 2011Q1

REPORT INFORMATION
  Report Type: 
  Country: None (occurrence: None)
  Receive Date: 20110128
  Receipt Date: 20100112
  Transmission Date: 20110831
  Serious: No
  Sender: FDA-Public Use
  Company Number: A0839000A

PATIENT
  Age: 48 Year
  Sex: Female

DRUGS (4)
  1. LOESTRIN 1.5/30 [Concomitant]
  2. WELLBUTRIN [Suspect]
     Indication: DEPRESSION
     Dosage: 100MG THREE TIMES PER DAY
     Route: 048
     Dates: start: 20090201
  3. TRAZODONE [Concomitant]
  4. DIAVAN [Concomitant]

REACTIONS (1)
  - TREMOR [None]
